FAERS Safety Report 8102588 (Version 2)
Quarter: 2013Q3

REPORT INFORMATION
  Report Type: Spontaneous
  Country: US (occurrence: US)
  Receive Date: 20110823
  Receipt Date: 20130911
  Transmission Date: 20140515
  Serious: Yes (Hospitalization)
  Sender: FDA-Public Use
  Company Number: US-GLAXOSMITHKLINE-A0915717A

PATIENT
  Age: 52 Year
  Sex: Female
  Weight: 98.2 kg

DRUGS (1)
  1. AVANDIA [Suspect]
     Indication: DIABETES MELLITUS
     Dosage: 4MG PER DAY
     Route: 048
     Dates: start: 200801, end: 201001

REACTIONS (4)
  - Ischaemia [Recovering/Resolving]
  - Chest pain [Unknown]
  - Cardiovascular disorder [Unknown]
  - Cardiac disorder [Unknown]
